FAERS Safety Report 10914575 (Version 2)
Quarter: 2015Q1

REPORT INFORMATION
  Report Type: Spontaneous
  Country: US (occurrence: US)
  Receive Date: 20150313
  Receipt Date: 20150319
  Transmission Date: 20150721
  Serious: Yes (Other)
  Sender: FDA-Public Use
  Company Number: US-GLAXOSMITHKLINE-US2015032498

PATIENT
  Age: 61 Year
  Sex: Male

DRUGS (6)
  1. AMLODIPINE [Concomitant]
     Active Substance: AMLODIPINE BESYLATE
  2. MILK THISTLE [Concomitant]
     Active Substance: MILK THISTLE
  3. VOTRIENT [Suspect]
     Active Substance: PAZOPANIB HYDROCHLORIDE
     Dosage: 200 MG, U
     Route: 048
     Dates: start: 20150304
  4. VITAMIN C [Concomitant]
     Active Substance: ASCORBIC ACID
  5. GEMFIBROZIL. [Concomitant]
     Active Substance: GEMFIBROZIL
  6. VOTRIENT [Suspect]
     Active Substance: PAZOPANIB HYDROCHLORIDE
     Indication: RENAL CELL CARCINOMA
     Dosage: 800 MG, QD
     Route: 048
     Dates: start: 20150101, end: 20150201

REACTIONS (3)
  - Nausea [Not Recovered/Not Resolved]
  - Expired product administered [Not Recovered/Not Resolved]
  - Liver injury [Recovered/Resolved]

NARRATIVE: CASE EVENT DATE: 20150104
